FAERS Safety Report 8612642 (Version 2)
Quarter: 2012Q4

REPORT INFORMATION
  Report Type: 
  Country: US (occurrence: US)
  Receive Date: 20120613
  Receipt Date: 20121217
  Transmission Date: 20130627
  Serious: Yes (Hospitalization, Other)
  Sender: FDA-Public Use
  Company Number: US-ROCHE-784190

PATIENT
  Age: 14 Year
  Sex: Male
  Weight: 56.75 kg

DRUGS (2)
  1. ACCUTANE [Suspect]
     Indication: ACNE
     Dosage: Dsoe: 40 mg or 80 mg daily
     Route: 048
     Dates: start: 20001124, end: 20010412
  2. ACCUTANE [Suspect]
     Route: 048
     Dates: start: 20020210, end: 20020318

REACTIONS (7)
  - Colitis ulcerative [Unknown]
  - Crohn^s disease [Unknown]
  - Inflammatory bowel disease [Unknown]
  - Stress [Unknown]
  - Depression [Unknown]
  - Cheilitis [Unknown]
  - Dermatitis [Unknown]
